FAERS Safety Report 15263324 (Version 2)
Quarter: 2020Q3

REPORT INFORMATION
  Report Type: Report from Study
  Country: FR (occurrence: FR)
  Receive Date: 20180810
  Receipt Date: 20180813
  Transmission Date: 20201104
  Serious: Yes (Life-Threatening, Hospitalization)
  Sender: FDA-Public Use
  Company Number: FR-ASTRAZENECA-2018SE98377

PATIENT
  Age: 25501 Day
  Sex: Female
  Weight: 63 kg

DRUGS (9)
  1. FOLINIC ACID [Suspect]
     Active Substance: LEUCOVORIN
     Indication: COLORECTAL CANCER
     Dosage: 750 MG EVERY CYCLE
     Route: 042
     Dates: start: 20180228, end: 20180528
  2. FLUOROURACIL. [Suspect]
     Active Substance: FLUOROURACIL
     Indication: COLORECTAL CANCER
     Dosage: BOLUS FU 750 MG EVERY CYCLE
     Route: 042
     Dates: start: 20180228, end: 20180528
  3. LOVENOX [Concomitant]
     Active Substance: ENOXAPARIN SODIUM
     Route: 065
     Dates: start: 201802
  4. INSULIN GLARGINE [Concomitant]
     Active Substance: INSULIN GLARGINE
     Indication: DIABETES MELLITUS
     Route: 048
     Dates: start: 201807
  5. MEDI4736 [Suspect]
     Active Substance: DURVALUMAB
     Indication: COLORECTAL CANCER
     Route: 042
     Dates: start: 20180228, end: 20180720
  6. OXALIPLATIN. [Suspect]
     Active Substance: OXALIPLATIN
     Indication: COLORECTAL CANCER
     Dosage: 160 MG EVERY CYCLE
     Route: 042
     Dates: start: 20180228, end: 20180528
  7. 5 FU [Suspect]
     Active Substance: FLUOROURACIL
     Indication: COLORECTAL CANCER
     Dosage: CONTINUOUS FU 4800 MG EVERY CYCLE
     Route: 042
     Dates: start: 20180228, end: 20180528
  8. PRIMPERAN [Concomitant]
     Active Substance: METOCLOPRAMIDE HYDROCHLORIDE
     Route: 048
     Dates: start: 201802
  9. TREMELIMUMAB. [Suspect]
     Active Substance: TREMELIMUMAB
     Indication: COLORECTAL CANCER
     Route: 042
     Dates: start: 20180228, end: 20180705

REACTIONS (1)
  - Diabetic ketoacidotic hyperglycaemic coma [Recovered/Resolved]

NARRATIVE: CASE EVENT DATE: 20180728
